FAERS Safety Report 7658517-2 (Version None)
Quarter: 2011Q3

REPORT INFORMATION
  Report Type: 
  Country: None (occurrence: None)
  Receive Date: 20110805
  Receipt Date: 20110721
  Transmission Date: 20111222
  Serious: Yes (Other)
  Sender: FDA-Public Use
  Company Number: US-ELI_LILLY_AND_COMPANY-US201107007985

PATIENT
  Sex: Female

DRUGS (2)
  1. FORTEO [Suspect]
     Dosage: 20 UG, QD
     Route: 058
     Dates: start: 20100629
  2. FOSAMAX [Concomitant]

REACTIONS (5)
  - BLOOD CALCIUM INCREASED [None]
  - CEREBROVASCULAR ACCIDENT [None]
  - VITAMIN D INCREASED [None]
  - SPEECH DISORDER [None]
  - MENTAL IMPAIRMENT [None]
